FAERS Safety Report 22310038 (Version 1)
Quarter: 2023Q2

REPORT INFORMATION
  Report Type: Spontaneous
  Country: US (occurrence: None)
  Receive Date: 20230510
  Receipt Date: 20230510
  Transmission Date: 20230722
  Serious: Yes (Other)
  Sender: FDA-Public Use
  Company Number: None

PATIENT
  Age: 4 Year
  Sex: Female

DRUGS (2)
  1. PREDNISOLONE [Suspect]
     Active Substance: PREDNISOLONE
     Dosage: FREQUENCY : TWICE A DAY;?
     Route: 048
     Dates: start: 20230409, end: 20230414
  2. Certizine [Concomitant]

REACTIONS (3)
  - Rash [None]
  - Urticaria [None]
  - Skin reaction [None]

NARRATIVE: CASE EVENT DATE: 20230420
